FAERS Safety Report 8837769 (Version 2)
Quarter: 2013Q4

REPORT INFORMATION
  Report Type: Spontaneous
  Country: NL (occurrence: NL)
  Receive Date: 20121012
  Receipt Date: 20131126
  Transmission Date: 20140711
  Serious: Yes (Hospitalization, Other)
  Sender: FDA-Public Use
  Company Number: NL-009507513-1210NLD004785

PATIENT
  Age: 59 Year
  Sex: Female
  Weight: 67 kg

DRUGS (5)
  1. SINGULAIR [Suspect]
     Indication: ASTHMA
     Dosage: 10 MG, UNK
     Route: 065
     Dates: start: 20120412, end: 20120920
  2. FOSTER (BECLOMETHASONE DIPROPIONATE (+) FORMOTEROL FUMARATE) [Concomitant]
     Indication: ASTHMA
     Dosage: 1 DF, TID
     Route: 065
     Dates: start: 20120315
  3. ALVESCO [Concomitant]
     Indication: ASTHMA
     Dosage: 320 MICROGRAM, BID
     Route: 065
  4. NASONEX [Concomitant]
     Indication: PRODUCT USED FOR UNKNOWN INDICATION
     Dosage: 1 DF, UNK
     Route: 065
  5. SPIRIVA [Concomitant]
     Indication: ASTHMA
     Dosage: 18 MICROGRAM, ONCE
     Route: 065

REACTIONS (3)
  - Eosinophilic pneumonia [Recovering/Resolving]
  - Allergic granulomatous angiitis [Recovering/Resolving]
  - Pulmonary eosinophilia [Recovering/Resolving]
